FAERS Safety Report 5989122-1 (Version None)
Quarter: 2008Q4

REPORT INFORMATION
  Report Type: 
  Country: None (occurrence: None)
  Receive Date: 20081210
  Receipt Date: 20081126
  Transmission Date: 20090506
  Serious: Yes (Other)
  Sender: FDA-Public Use
  Company Number: US-GENENTECH-273068

PATIENT

DRUGS (2)
  1. RITUXAN [Suspect]
     Indication: B-CELL LYMPHOMA
     Dosage: 375 MG/M2, UNK
     Route: 042
  2. OBLIMERSEN SODIUM [Suspect]
     Indication: B-CELL LYMPHOMA RECURRENT
     Dosage: 3 MG/KG, UNK
     Route: 042

REACTIONS (1)
  - DEEP VEIN THROMBOSIS [None]
